FAERS Safety Report 14261873 (Version 3)
Quarter: 2018Q2

REPORT INFORMATION
  Report Type: Spontaneous
  Country: US (occurrence: US)
  Receive Date: 20171208
  Receipt Date: 20180422
  Transmission Date: 20180711
  Serious: Yes (Hospitalization, Other)
  Sender: FDA-Public Use
  Company Number: US-APOTEX-2017AP022614

PATIENT
  Age: 56 Year
  Sex: Female
  Weight: 58 kg

DRUGS (18)
  1. PHENOBARBITAL. [Suspect]
     Active Substance: PHENOBARBITAL
     Dosage: 64.8 MG, Q.H.S.
     Route: 065
  2. LEVOTHYROXINE. [Concomitant]
     Active Substance: LEVOTHYROXINE
     Indication: PRODUCT USED FOR UNKNOWN INDICATION
     Dosage: 88 ?G, DAILY
     Route: 065
  3. LEVETIRACETAM. [Concomitant]
     Active Substance: LEVETIRACETAM
     Dosage: 1000 UNK, UNK
     Route: 065
  4. PHENOBARBITAL. [Suspect]
     Active Substance: PHENOBARBITAL
     Dosage: 32.4 MG, TID
     Route: 065
  5. CALCIUM CARBONATE. [Concomitant]
     Active Substance: CALCIUM CARBONATE
     Indication: PRODUCT USED FOR UNKNOWN INDICATION
     Dosage: 500 MG, BID
     Route: 065
  6. METHENAMINE [Concomitant]
     Active Substance: METHENAMINE
     Indication: PRODUCT USED FOR UNKNOWN INDICATION
     Dosage: 1000 MG, DAILY
     Route: 065
  7. PHENOBARBITAL. [Suspect]
     Active Substance: PHENOBARBITAL
     Dosage: 32.4 MG, Q. AF
     Route: 065
  8. MAGNESIUM [Concomitant]
     Active Substance: MAGNESIUM
     Indication: PRODUCT USED FOR UNKNOWN INDICATION
     Dosage: 1000 MG PER 5 ML, TID
     Route: 065
  9. POLYETHYLENE GLYCOL [Concomitant]
     Active Substance: POLYETHYLENE GLYCOLS
     Indication: PRODUCT USED FOR UNKNOWN INDICATION
     Dosage: 17 G, DAILY
     Route: 065
  10. LEVETIRACETAM. [Concomitant]
     Active Substance: LEVETIRACETAM
     Indication: PRODUCT USED FOR UNKNOWN INDICATION
     Dosage: 500 MG, BID
     Route: 065
  11. TOPIRAMATE. [Suspect]
     Active Substance: TOPIRAMATE
     Indication: EPILEPSY
     Dosage: 200 MG, Q.AM
     Route: 065
  12. TOPIRAMATE. [Suspect]
     Active Substance: TOPIRAMATE
     Dosage: 300 MG, BID
     Route: 065
     Dates: start: 201412
  13. PHENOBARBITAL. [Suspect]
     Active Substance: PHENOBARBITAL
     Indication: EPILEPSY
     Dosage: 32.4 MG, Q.AM
     Route: 065
  14. VITAMIN D                          /00107901/ [Concomitant]
     Active Substance: ERGOCALCIFEROL
     Indication: PRODUCT USED FOR UNKNOWN INDICATION
     Dosage: 400 IU, DAILY
     Route: 065
  15. TOPIRAMATE. [Suspect]
     Active Substance: TOPIRAMATE
     Dosage: 300 MG, Q.H.S.
     Route: 065
  16. TOPIRAMATE. [Suspect]
     Active Substance: TOPIRAMATE
     Dosage: 200 MG, BID
     Route: 065
  17. TOPIRAMATE. [Suspect]
     Active Substance: TOPIRAMATE
     Dosage: 400 MG, QD
     Route: 065
  18. MULTIVITAMIN                       /00097801/ [Concomitant]
     Active Substance: VITAMINS
     Indication: PRODUCT USED FOR UNKNOWN INDICATION
     Dosage: UNK
     Route: 065

REACTIONS (3)
  - Hyperammonaemia [Recovering/Resolving]
  - Hypothermia [Recovered/Resolved]
  - Drug interaction [Unknown]

NARRATIVE: CASE EVENT DATE: 201502
